FAERS Safety Report 4734008-3 (Version None)
Quarter: 2005Q3

REPORT INFORMATION
  Report Type: 
  Country: None (occurrence: None)
  Receive Date: 20050721
  Receipt Date: 20050509
  Transmission Date: 20060218
  Serious: No
  Sender: FDA-Public Use
  Company Number: 2005SP000649

PATIENT
  Age: 70 Year
  Sex: Male
  Weight: 88.4514 kg

DRUGS (3)
  1. LUNESTA [Suspect]
     Dosage: 3 MG; ORAL,   2 MG; ORAL,   2 MG;1X;ORAL
     Route: 048
     Dates: start: 20050505, end: 20050501
  2. LUNESTA [Suspect]
     Dosage: 3 MG; ORAL,   2 MG; ORAL,   2 MG;1X;ORAL
     Route: 048
     Dates: start: 20050508, end: 20050508
  3. LUNESTA [Suspect]
     Dosage: 3 MG; ORAL,   2 MG; ORAL,   2 MG;1X;ORAL
     Route: 048
     Dates: start: 20050508

REACTIONS (3)
  - DRUG INEFFECTIVE [None]
  - DYSGEUSIA [None]
  - MIDDLE INSOMNIA [None]
